FAERS Safety Report 4697019-2 (Version None)
Quarter: 2005Q2

REPORT INFORMATION
  Report Type: 
  Country: None (occurrence: None)
  Receive Date: 20050620
  Receipt Date: 20050302
  Transmission Date: 20051028
  Serious: No
  Sender: FDA-Public Use
  Company Number: US-YAMANOUCH-YPA20050138

PATIENT
  Sex: Female

DRUGS (1)
  1. VESICARE [Suspect]
     Dosage: 5 MG PO
     Route: 048
     Dates: start: 20050101

REACTIONS (2)
  - ERYTHEMA [None]
  - FLUSHING [None]
